FAERS Safety Report 20385174 (Version 1)
Quarter: 2022Q1

REPORT INFORMATION
  Report Type: Spontaneous
  Country: IT (occurrence: IT)
  Receive Date: 20220127
  Receipt Date: 20220127
  Transmission Date: 20220423
  Serious: Yes (Other)
  Sender: FDA-Public Use
  Company Number: None

PATIENT
  Age: 61 Year
  Sex: Female

DRUGS (2)
  1. BIKTARVY [Suspect]
     Active Substance: BICTEGRAVIR SODIUM\EMTRICITABINE\TENOFOVIR ALAFENAMIDE FUMARATE
     Indication: HIV infection
     Dosage: 1 DOSAGE FORM, QD
     Route: 048
     Dates: start: 20200828, end: 20211116
  2. GOSURAN [Concomitant]

REACTIONS (2)
  - Osteonecrosis [Recovering/Resolving]
  - Gait disturbance [Recovering/Resolving]

NARRATIVE: CASE EVENT DATE: 20211108
